FAERS Safety Report 5106307-7 (Version None)
Quarter: 2006Q3

REPORT INFORMATION
  Report Type: 
  Country: None (occurrence: None)
  Receive Date: 20060918
  Receipt Date: 20060912
  Transmission Date: 20061208
  Serious: Yes (Hospitalization)
  Sender: FDA-Public Use
  Company Number: FR-JNJFOC-20060900460

PATIENT
  Age: 60 Year
  Sex: Female

DRUGS (14)
  1. TAVANIC [Suspect]
     Indication: LARGE INTESTINE PERFORATION
     Route: 048
     Dates: start: 20060704, end: 20060706
  2. TAVANIC [Suspect]
     Indication: PERITONITIS
     Route: 048
     Dates: start: 20060704, end: 20060706
  3. TAVANIC [Suspect]
     Indication: LIP AND/OR ORAL CAVITY CANCER
     Route: 048
     Dates: start: 20060704, end: 20060706
  4. TAZOCILLINE [Suspect]
     Indication: LARGE INTESTINE PERFORATION
     Route: 042
     Dates: start: 20060704, end: 20060707
  5. TAZOCILLINE [Suspect]
     Indication: PERITONITIS
     Route: 042
     Dates: start: 20060704, end: 20060707
  6. TAZOCILLINE [Suspect]
     Indication: LIP AND/OR ORAL CAVITY CANCER
     Route: 042
     Dates: start: 20060704, end: 20060707
  7. TRIVASTAL [Concomitant]
     Route: 048
  8. LEXOMIL [Concomitant]
     Route: 048
  9. ATENOLOL [Concomitant]
     Route: 048
  10. NEXIUM [Concomitant]
     Route: 048
  11. FONZYLANE [Concomitant]
     Route: 065
  12. IMODIUM [Concomitant]
     Route: 065
  13. MOPRAL [Concomitant]
     Route: 065
  14. LOVENOX [Concomitant]
     Route: 065

REACTIONS (5)
  - ANURIA [None]
  - CIRCULATORY COLLAPSE [None]
  - DEHYDRATION [None]
  - MALAISE [None]
  - RENAL FAILURE ACUTE [None]
